FAERS Safety Report 17589867 (Version 2)
Quarter: 2021Q2

REPORT INFORMATION
  Report Type: Spontaneous
  Country: US (occurrence: US)
  Receive Date: 20200327
  Receipt Date: 20210413
  Transmission Date: 20210716
  Serious: No
  Sender: FDA-Public Use
  Company Number: US-ALLERGAN-2004285US

PATIENT
  Age: 86 Year
  Sex: Female

DRUGS (3)
  1. LUMIGAN [Suspect]
     Active Substance: BIMATOPROST
     Indication: NORMAL TENSION GLAUCOMA
     Dosage: 1 GTT, QHS
     Route: 047
     Dates: start: 20190508
  2. ALPHAGAN P [Concomitant]
     Active Substance: BRIMONIDINE TARTRATE
     Indication: GLAUCOMA
     Dosage: UNK
     Route: 047
     Dates: start: 2017
  3. ALPHAGAN P [Concomitant]
     Active Substance: BRIMONIDINE TARTRATE
     Dosage: 2 GTT
     Route: 047
     Dates: start: 201310, end: 2017

REACTIONS (4)
  - Skin hyperpigmentation [Unknown]
  - Product delivery mechanism issue [Unknown]
  - Product container issue [Unknown]
  - Accidental exposure to product [Unknown]
